FAERS Safety Report 16984386 (Version 1)
Quarter: 2019Q4

REPORT INFORMATION
  Report Type: Spontaneous
  Country: US (occurrence: US)
  Receive Date: 20191101
  Receipt Date: 20191101
  Transmission Date: 20200122
  Serious: No
  Sender: FDA-Public Use
  Company Number: US-FARMAPROD-201908-1262

PATIENT
  Age: 19 Year
  Sex: Female

DRUGS (4)
  1. THERATEARS [Concomitant]
     Active Substance: CARBOXYMETHYLCELLULOSE SODIUM
     Dosage: FREQUENCY: AS NEEDED FOR BOTH EYES.
  2. SERUM TEARS [Concomitant]
     Dosage: FREQUENCY: EVERY 2 HOURS DAILY IN THE RIGHT EYE AND 4 TIMES DAILY IN THE LEFT EYE.
  3. DEXAMETHASONE. [Concomitant]
     Active Substance: DEXAMETHASONE
  4. OXERVATE [Suspect]
     Active Substance: CENEGERMIN-BKBJ
     Indication: NEUROTROPHIC KERATOPATHY
     Route: 047
     Dates: start: 20190731

REACTIONS (2)
  - Photosensitivity reaction [Unknown]
  - Eye swelling [Unknown]

NARRATIVE: CASE EVENT DATE: 20190801
